FAERS Safety Report 9147470 (Version 1)
Quarter: 2013Q1

REPORT INFORMATION
  Report Type: Spontaneous
  Country: TR (occurrence: None)
  Receive Date: 20130220
  Receipt Date: 20130220
  Transmission Date: 20140127
  Serious: Yes (Death, Hospitalization)
  Sender: FDA-Public Use
  Company Number: UTC-029203

PATIENT
  Age: 15 Year
  Sex: Male

DRUGS (5)
  1. REMODULIN (INJECTION FOR INFUSION) (TREPROSTINIL SODIUM) [Suspect]
     Indication: PRODUCT USED FOR UNKNOWN INDICATION
     Dates: start: 20130209, end: 20130209
  2. BOSENTAN (BOSENTAN) [Concomitant]
  3. REVATIO (SILDENAFIL CITRATE) [Concomitant]
  4. VENTAVIS (ILOPROST) [Concomitant]
  5. DOBUTAMINE (DOBUTAMINE) [Concomitant]

REACTIONS (3)
  - Cardiac arrest [None]
  - Disease progression [None]
  - Tachycardia [None]
